FAERS Safety Report 6120845-X (Version None)
Quarter: 2009Q1

REPORT INFORMATION
  Report Type: 
  Country: None (occurrence: None)
  Receive Date: 20090317
  Receipt Date: 20090306
  Transmission Date: 20090719
  Serious: Yes (Other)
  Sender: FDA-Public Use
  Company Number: FR-ROCHE-619764

PATIENT
  Age: 72 Year
  Sex: Female

DRUGS (2)
  1. BONIVA [Suspect]
     Indication: OSTEOPOROSIS
     Dosage: FIRST INJECTION
     Route: 042
     Dates: start: 20080201
  2. BONIVA [Suspect]
     Dosage: SECOND INJECTION
     Route: 042
     Dates: start: 20080816

REACTIONS (1)
  - POLYMYALGIA RHEUMATICA [None]
